FAERS Safety Report 10524637 (Version 1)
Quarter: 2014Q4

REPORT INFORMATION
  Report Type: Spontaneous
  Country: GB (occurrence: None)
  Receive Date: 20141010
  Receipt Date: 20141010
  Transmission Date: 20150528
  Serious: Yes (Other)
  Sender: FDA-Public Use
  Company Number: GB-H14001-14-00958

PATIENT
  Age: 71 Year
  Sex: Female

DRUGS (3)
  1. METRONIDAZOLE (METRONIDAZOLE) [Concomitant]
     Active Substance: METRONIDAZOLE
  2. CIPROFLOXACIN (CIPROFLOXACIN HYDROCHLORIDE) 500 MILLIGRAM, TABLETS) [Suspect]
     Active Substance: CIPROFLOXACIN\CIPROFLOXACIN HYDROCHLORIDE
     Indication: PROPHYLAXIS
     Route: 048
     Dates: start: 20140816, end: 20140821
  3. CIPROFLOXACIN (CIPROFLOXACIN) [Suspect]
     Active Substance: CIPROFLOXACIN
     Indication: INCISIONAL DRAINAGE
     Route: 042
     Dates: start: 20140814, end: 20140816

REACTIONS (7)
  - Peripheral swelling [None]
  - Suicidal ideation [None]
  - Joint swelling [None]
  - Insomnia [None]
  - Cardiac failure congestive [None]
  - Pain [None]
  - Atrial fibrillation [None]

NARRATIVE: CASE EVENT DATE: 2014
